FAERS Safety Report 4316898-1 (Version None)
Quarter: 2004Q1

REPORT INFORMATION
  Report Type: 
  Country: None (occurrence: None)
  Receive Date: 20040312
  Receipt Date: 20040312
  Transmission Date: 20041129
  Serious: Yes (Other)
  Sender: FDA-Public Use
  Company Number: None

PATIENT
  Age: 67 Year
  Sex: Female
  Weight: 68.0396 kg

DRUGS (6)
  1. OLUX FOAM [Suspect]
     Indication: SEBORRHOEIC DERMATITIS
     Dosage: BID
     Dates: start: 20040211, end: 20040212
  2. PREMARIN [Concomitant]
  3. SYNTHROID [Concomitant]
  4. PEPCID [Concomitant]
  5. METROCREAM [Concomitant]
  6. NIZORAL CREAM [Concomitant]

REACTIONS (1)
  - HEADACHE [None]
